FAERS Safety Report 7451409-3 (Version None)
Quarter: 2011Q2

REPORT INFORMATION
  Report Type: 
  Country: None (occurrence: None)
  Receive Date: 20110502
  Receipt Date: 20110426
  Transmission Date: 20111010
  Serious: Yes (Other)
  Sender: FDA-Public Use
  Company Number: US-PFIZER INC-2011090322

PATIENT
  Sex: Female
  Weight: 1.219 kg

DRUGS (4)
  1. TENORMIN [Concomitant]
  2. ZOLOFT [Suspect]
     Indication: MOOD SWINGS
     Dosage: 50 MG, 1X/DAY
     Route: 064
     Dates: start: 19970501
  3. LISINOPRIL [Concomitant]
  4. ZOLOFT [Suspect]
     Indication: DEPRESSION

REACTIONS (2)
  - PREMATURE BABY [None]
  - DRUG EXPOSURE DURING PREGNANCY [None]
